FAERS Safety Report 17717497 (Version 1)
Quarter: 2020Q2

REPORT INFORMATION
  Report Type: Spontaneous
  Country: US (occurrence: US)
  Receive Date: 20200427
  Receipt Date: 20200427
  Transmission Date: 20200714
  Serious: Yes (Other)
  Sender: FDA-Public Use
  Company Number: None

PATIENT
  Age: 55 Year
  Sex: Female
  Weight: 62 kg

DRUGS (3)
  1. MAGESIUM IV [Concomitant]
  2. TACROLIMUS. [Concomitant]
     Active Substance: TACROLIMUS
  3. GANCICLOVIR 500MG [Suspect]
     Active Substance: GANCICLOVIR
     Route: 042
     Dates: start: 20200311, end: 20200423

REACTIONS (2)
  - Platelet count decreased [None]
  - Therapy cessation [None]

NARRATIVE: CASE EVENT DATE: 20200420
